FAERS Safety Report 8848911 (Version 1)
Quarter: 2012Q4

REPORT INFORMATION
  Report Type: Spontaneous
  Country: US (occurrence: None)
  Receive Date: 20121017
  Receipt Date: 20121017
  Transmission Date: 20130627
  Serious: Yes (Other)
  Sender: FDA-Public Use
  Company Number: None

PATIENT
  Age: 70 Year
  Sex: Female
  Weight: 65 kg

DRUGS (3)
  1. BUPROPION HCL XL TABLETS [Suspect]
     Indication: MAJOR DEPRESSIVE DISORDER, RECURRENT EPISODE
     Route: 048
     Dates: start: 20120508, end: 20120831
  2. BUPROPION HCL XL TABLETS [Suspect]
     Route: 048
     Dates: start: 20120508, end: 20120831
  3. BUPROPION HCL XL TABLETS [Suspect]
     Route: 048
     Dates: start: 20120508, end: 20120831

REACTIONS (3)
  - Drug ineffective [None]
  - Depression [None]
  - Product substitution issue [None]
